FAERS Safety Report 10522884 (Version 2)
Quarter: 2014Q4

REPORT INFORMATION
  Report Type: Spontaneous
  Country: KR (occurrence: KR)
  Receive Date: 20141016
  Receipt Date: 20141103
  Transmission Date: 20150528
  Serious: No
  Sender: FDA-Public Use
  Company Number: KR-GLAXOSMITHKLINE-KR2014GSK002532

PATIENT
  Sex: Male

DRUGS (2)
  1. AVODART [Suspect]
     Active Substance: DUTASTERIDE
     Indication: BENIGN PROSTATIC HYPERPLASIA
     Dosage: UNK
     Dates: end: 201409
  2. HARNAL [Suspect]
     Active Substance: TAMSULOSIN HYDROCHLORIDE
     Indication: BENIGN PROSTATIC HYPERPLASIA
     Dosage: UNK
     Dates: end: 201409

REACTIONS (4)
  - Dizziness [Recovering/Resolving]
  - Paraesthesia [Recovering/Resolving]
  - Headache [Recovering/Resolving]
  - Orthostatic hypotension [Recovering/Resolving]
